FAERS Safety Report 23320768 (Version 2)
Quarter: 2025Q3

REPORT INFORMATION
  Report Type: Spontaneous
  Country: KR (occurrence: KR)
  Receive Date: 20231220
  Receipt Date: 20250807
  Transmission Date: 20251020
  Serious: Yes (Other)
  Sender: SANOFI AVENTIS
  Company Number: KR-ASTELLAS-2023US032524

PATIENT
  Age: 80 Year
  Sex: Male

DRUGS (7)
  1. HARNAL [Suspect]
     Active Substance: TAMSULOSIN HYDROCHLORIDE
     Indication: Urinary tract disorder
     Dosage: 0.2 MG, ONCE DAILY, (ONE TABLET ONCE DAILY AT 10PM SINCE ABOUT 5-6 YEARS AGO FOR ABOUT 2-3 MONTHS)
     Route: 065
  2. HARNAL [Suspect]
     Active Substance: TAMSULOSIN HYDROCHLORIDE
     Indication: Benign prostatic hyperplasia
     Dosage: 0.4 MG, ONCE DAILY, (INCREASED TO TWO TABLETS ONCE DAILY AT 10PM)
     Route: 065
  3. MIRABEGRON [Suspect]
     Active Substance: MIRABEGRON
     Indication: Hypertonic bladder
     Dosage: 50 MG, QD (50 MG, ONCE DAILY (ONE TABLET ONCE DAILY AROUND 8:30PM) (FOR OVER 10 YEARS)
     Route: 065
  4. MIRABEGRON [Suspect]
     Active Substance: MIRABEGRON
     Dosage: 50 MG, BID (50 MG, TWICE DAILY (TOOK ONE TABLET AT 8:30PM AND TOOK IT AGAIN AT 9:30PM BECAUSE HE FOR
     Route: 065
     Dates: start: 20231028, end: 20231028
  5. MIRABEGRON [Suspect]
     Active Substance: MIRABEGRON
     Route: 065
  6. DESMOPRESSIN [Concomitant]
     Active Substance: DESMOPRESSIN
     Indication: Nocturia
     Route: 065
  7. DUTASTERIDE [Concomitant]
     Active Substance: DUTASTERIDE
     Indication: Urinary tract disorder
     Route: 065

REACTIONS (7)
  - Arrhythmia [Unknown]
  - Bradycardia [Unknown]
  - Hot flush [Unknown]
  - Constipation [Unknown]
  - Drug ineffective [Unknown]
  - Accidental overdose [Unknown]
  - Extra dose administered [Unknown]

NARRATIVE: CASE EVENT DATE: 20231028
